FAERS Safety Report 20213784 (Version 5)
Quarter: 2022Q1

REPORT INFORMATION
  Report Type: Spontaneous
  Country: US (occurrence: US)
  Receive Date: 20211221
  Receipt Date: 20220214
  Transmission Date: 20220423
  Serious: No
  Sender: FDA-Public Use
  Company Number: US-GSKCCFUS-Case-01247788_AE-73045

PATIENT
  Sex: Female

DRUGS (1)
  1. FLOVENT HFA [Suspect]
     Active Substance: FLUTICASONE PROPIONATE
     Indication: Product used for unknown indication
     Dosage: 110 MCG UNK
     Route: 055

REACTIONS (3)
  - Dysphonia [Recovering/Resolving]
  - Drug ineffective [Recovering/Resolving]
  - Product complaint [Unknown]
